FAERS Safety Report 7546371 (Version 8)
Quarter: 2014Q1

REPORT INFORMATION
  Report Type: Spontaneous
  Country: US (occurrence: US)
  Receive Date: 20100819
  Receipt Date: 20140322
  Transmission Date: 20141002
  Serious: Yes (Hospitalization, Other)
  Sender: FDA-Public Use
  Company Number: US-US-EMD SERONO, INC.-7014021

PATIENT
  Sex: Male
  Weight: 74 kg

DRUGS (2)
  1. REBIF [Suspect]
     Indication: MULTIPLE SCLEROSIS
     Route: 058
     Dates: start: 20090223
  2. REBIF [Suspect]
     Route: 058

REACTIONS (19)
  - Prostate cancer [Not Recovered/Not Resolved]
  - Aortic aneurysm [Recovering/Resolving]
  - Peripheral artery aneurysm [Not Recovered/Not Resolved]
  - Renal failure [Not Recovered/Not Resolved]
  - Ureteric injury [Recovered/Resolved]
  - Urosepsis [Recovered/Resolved]
  - Intraspinal abscess [Unknown]
  - Staphylococcal infection [Unknown]
  - Enterococcal infection [Recovered/Resolved]
  - Escherichia urinary tract infection [Recovered/Resolved]
  - Proteus infection [Recovered/Resolved]
  - Pneumonia [Unknown]
  - Empyema [Unknown]
  - Multiple sclerosis [Not Recovered/Not Resolved]
  - Lung infection [Not Recovered/Not Resolved]
  - Device related infection [Not Recovered/Not Resolved]
  - Spinal cord disorder [Not Recovered/Not Resolved]
  - Gynaecomastia [Unknown]
  - Urinary incontinence [Unknown]
